FAERS Safety Report 4555446-8 (Version None)
Quarter: 2005Q1

REPORT INFORMATION
  Report Type: 
  Country: None (occurrence: None)
  Receive Date: 20050118
  Receipt Date: 20050118
  Transmission Date: 20050727
  Serious: Yes (Hospitalization)
  Sender: FDA-Public Use
  Company Number: None

PATIENT
  Age: 27 Year
  Sex: Male
  Weight: 90.7194 kg

DRUGS (2)
  1. PAXIL [Suspect]
     Indication: ANXIETY
     Dosage: 40 MG    DAILY   ORAL
     Route: 048
     Dates: start: 20010915, end: 20020725
  2. PAXIL [Suspect]
     Indication: DEPRESSION
     Dosage: 40 MG    DAILY   ORAL
     Route: 048
     Dates: start: 20010915, end: 20020725

REACTIONS (4)
  - AGGRESSION [None]
  - DIZZINESS [None]
  - NAUSEA [None]
  - SUICIDE ATTEMPT [None]
